FAERS Safety Report 8545156-4 (Version None)
Quarter: 2012Q3

REPORT INFORMATION
  Report Type: 
  Country: None (occurrence: None)
  Receive Date: 20120727
  Receipt Date: 20120717
  Transmission Date: 20120928
  Serious: Yes (Hospitalization)
  Sender: FDA-Public Use
  Company Number: ZA-ELI_LILLY_AND_COMPANY-ZA201207006833

PATIENT
  Sex: Female
  Weight: 60 kg

DRUGS (5)
  1. HUMALOG MIX 75/25 [Suspect]
     Indication: DIABETES MELLITUS
     Dosage: 36 U, EACH MORNING
     Route: 058
     Dates: start: 20100101
  2. HUMALOG MIX 75/25 [Suspect]
     Dosage: 36 U, EACH EVENING
     Route: 058
     Dates: start: 20100101
  3. CARLOC [Concomitant]
     Indication: HYPERTENSION
     Dosage: 25 MG, EACH MORNING
     Route: 048
     Dates: start: 20080101
  4. GLUCOPHAGE [Concomitant]
     Indication: DIABETES MELLITUS
     Dosage: 1000 MG, BID
     Route: 048
     Dates: start: 20070101
  5. COZAAR [Concomitant]
     Indication: HYPERTENSION
     Dosage: 100 MG, EACH MORNING
     Route: 048
     Dates: start: 20080101

REACTIONS (2)
  - EPISTAXIS [None]
  - EAR TUBE INSERTION [None]
